FAERS Safety Report 7293289-5 (Version None)
Quarter: 2011Q1

REPORT INFORMATION
  Report Type: 
  Country: None (occurrence: None)
  Receive Date: 20110210
  Receipt Date: 20110210
  Transmission Date: 20110831
  Serious: Yes (Hospitalization)
  Sender: FDA-Public Use
  Company Number: None

PATIENT
  Age: 63 Year
  Sex: Male

DRUGS (2)
  1. CISPLATIN [Suspect]
     Dosage: 145 MG ONCE IV
     Route: 042
     Dates: start: 20100614, end: 20100614
  2. FLUOROURACIL [Suspect]
     Dosage: 78 MG PER HOUR IV
     Route: 042
     Dates: start: 20100614, end: 20100618

REACTIONS (2)
  - LEUKOPENIA [None]
  - FEBRILE NEUTROPENIA [None]
